FAERS Safety Report 5345963-5 (Version None)
Quarter: 2007Q2

REPORT INFORMATION
  Report Type: 
  Country: None (occurrence: None)
  Receive Date: 20070605
  Receipt Date: 20070529
  Transmission Date: 20071010
  Serious: Yes (Other)
  Sender: FDA-Public Use
  Company Number: KR-JNJFOC-20070506785

PATIENT
  Age: 60 Year
  Sex: Male

DRUGS (3)
  1. DURAGESIC-50 [Suspect]
     Indication: CANCER PAIN
     Dosage: 6 X 50UG/HR PATCHES
     Route: 062
  2. MORPHINE [Concomitant]
     Indication: CANCER PAIN
     Route: 050
  3. OXYCONTIN [Concomitant]
     Indication: CANCER PAIN
     Route: 048

REACTIONS (3)
  - APPLICATION SITE PRURITUS [None]
  - APPLICATION SITE RASH [None]
  - OFF LABEL USE [None]
